FAERS Safety Report 7830605-7 (Version None)
Quarter: 2011Q4

REPORT INFORMATION
  Report Type: 
  Country: None (occurrence: None)
  Receive Date: 20111021
  Receipt Date: 20111013
  Transmission Date: 20120403
  Serious: Yes (Death)
  Sender: FDA-Public Use
  Company Number: JP-ASTRAZENECA-2011SE62517

PATIENT
  Age: 72 Year
  Sex: Female

DRUGS (6)
  1. SEROQUEL [Suspect]
     Indication: INSOMNIA
     Route: 048
  2. DIAZEPAM [Concomitant]
     Route: 048
  3. DEPAKENE [Concomitant]
     Route: 048
  4. LYRICA [Concomitant]
     Route: 048
  5. RISPERDAL [Suspect]
     Indication: INSOMNIA
     Route: 048
     Dates: start: 20110810, end: 20110815
  6. HALCION [Concomitant]
     Route: 048

REACTIONS (2)
  - PNEUMONIA ASPIRATION [None]
  - NEUROLEPTIC MALIGNANT SYNDROME [None]
